FAERS Safety Report 9133577 (Version 1)
Quarter: 2013Q1

REPORT INFORMATION
  Report Type: Spontaneous
  Country: US (occurrence: US)
  Receive Date: 20130124
  Receipt Date: 20130124
  Transmission Date: 20140127
  Serious: Yes (Other)
  Sender: FDA-Public Use
  Company Number: US-BRACCO-007267

PATIENT
  Age: 59 Year
  Sex: Female
  Weight: 64 kg

DRUGS (13)
  1. SIMVASTATIN [Concomitant]
  2. NITROSTAT [Concomitant]
  3. CYCLOBENZAPRINE [Concomitant]
  4. MULTIHANCE [Suspect]
     Indication: NUCLEAR MAGNETIC RESONANCE IMAGING
     Dosage: 22 GAUGE IV LEFT ANTECUBITAL
     Route: 042
     Dates: start: 20111207, end: 20111207
  5. MULTIHANCE [Suspect]
     Indication: SYNOVITIS
     Dosage: 22 GAUGE IV LEFT ANTECUBITAL
     Route: 042
     Dates: start: 20111207, end: 20111207
  6. HYDROCHLOROTHIAZIDE [Concomitant]
  7. TRAMADOL HCL [Concomitant]
  8. NEXIUM [Concomitant]
  9. VITAMIN D [Concomitant]
  10. OMEPRAZOLE [Concomitant]
  11. GLIPIZIDE [Concomitant]
  12. TRAZODONE [Concomitant]
  13. MELOXICAM [Concomitant]

REACTIONS (3)
  - Anaphylactic reaction [Recovered/Resolved]
  - Hypertension [Recovered/Resolved]
  - Tremor [Recovered/Resolved]
